FAERS Safety Report 18667089 (Version 1)
Quarter: 2020Q4

REPORT INFORMATION
  Report Type: Spontaneous
  Country: FR (occurrence: FR)
  Receive Date: 20201228
  Receipt Date: 20201228
  Transmission Date: 20210114
  Serious: Yes (Hospitalization, Disabling, Other)
  Sender: FDA-Public Use
  Company Number: FR-AUROBINDO-AUR-APL-2020-062947

PATIENT
  Age: 47 Year
  Sex: Female

DRUGS (38)
  1. CYPROTERONE ACETATE ARROW 50MG SCORED TABLET [Suspect]
     Active Substance: CYPROTERONE ACETATE
     Dosage: ONE TABLET 7 DAYS A MONTH; THEN 1/2 TABLET 20 DAYS PER MONTH
     Route: 048
     Dates: start: 20130111, end: 20130503
  2. CYPROTERONE TABLET [Suspect]
     Active Substance: CYPROTERONE
     Indication: HYPERANDROGENISM
     Dosage: ONE TABLET 7 DAYS A MONTH: THEN Y, TABLET 20 DAYS PER MONTH
     Route: 048
     Dates: start: 2000, end: 20040901
  3. OMEPRAZOLE. [Suspect]
     Active Substance: OMEPRAZOLE
     Indication: PRODUCT USED FOR UNKNOWN INDICATION
     Dosage: UNK
     Route: 065
     Dates: start: 20110728
  4. CYPROTERON MYLAN [Suspect]
     Active Substance: CYPROTERONE ACETATE
     Dosage: ONE TABLET 7 DAYS A MONTH; THEN 1/2 TABLET 20 DAYS PER MONTH
     Route: 048
     Dates: start: 20100701
  5. CYPROTERON MYLAN [Suspect]
     Active Substance: CYPROTERONE ACETATE
     Dosage: ONE TABLET 7 DAYS A MONTH; THEN 1/2 TABLET 20 DAYS PER MONTH
     Route: 048
  6. CYPROTERONE SANDOZ [Interacting]
     Active Substance: CYPROTERONE ACETATE
     Indication: HYPERANDROGENISM
     Dosage: ONE TABLET 7 DAYS A MONTH; THEN 1/2 TABLET 20 DAYS PER MONTH
     Route: 048
     Dates: start: 20110616
  7. CYPROTERONE BIOGARAN [Interacting]
     Active Substance: CYPROTERONE ACETATE
     Dosage: ONE TABLET 7 DAYS A MONTH: THEN Y, TABLET 20 DAYS PER MONTH
     Route: 048
     Dates: start: 20140513
  8. CYPROTERONE ACETATE ARROW 50MG SCORED TABLET [Suspect]
     Active Substance: CYPROTERONE ACETATE
     Dosage: ONE TABLET 7 DAYS A MONTH; THEN 1/2 TABLET 20 DAYS PER MONTH
     Route: 048
     Dates: start: 20110907, end: 20111125
  9. CYPROTERON MYLAN [Suspect]
     Active Substance: CYPROTERONE ACETATE
     Dosage: ONE TABLET 7 DAYS A MONTH; THEN 1/2 TABLET 20 DAYS PER MONTH
     Route: 048
     Dates: start: 20100302
  10. CYPROTERON MYLAN [Suspect]
     Active Substance: CYPROTERONE ACETATE
     Dosage: ONE TABLET 7 DAYS A MONTH; THEN 1/2 TABLET 20 DAYS PER MONTH
     Route: 048
     Dates: start: 20100914
  11. CYPROTERONE BIOGARAN [Interacting]
     Active Substance: CYPROTERONE ACETATE
     Dosage: ONE TABLET 7 DAYS A MONTH: THEN Y, TABLET 20 DAYS PER MONTH
     Route: 048
     Dates: start: 20130827
  12. ACETATE DE CYPROTERONE EG [Interacting]
     Active Substance: CYPROTERONE ACETATE
     Indication: HYPERANDROGENISM
     Dosage: ONE TABLET 7 DAYS A MONTH: THEN Y, TABLET 20 DAYS PER MONTH
     Route: 048
     Dates: start: 20140329
  13. CYPROTERONE TABLET [Suspect]
     Active Substance: CYPROTERONE
     Dosage: ONE TABLET 7 DAYS A MONTH: THEN Y, TABLET 20 DAYS PER MONTH
     Route: 048
     Dates: start: 200507, end: 201506
  14. CYPROTERON MYLAN [Suspect]
     Active Substance: CYPROTERONE ACETATE
     Dosage: ONE TABLET 7 DAYS A MONTH; THEN 1/2 TABLET 20 DAYS PER MONTH
     Route: 048
     Dates: start: 20091002
  15. CYPROTERON MYLAN [Suspect]
     Active Substance: CYPROTERONE ACETATE
     Dosage: ONE TABLET 7 DAYS A MONTH; THEN 1/2 TABLET 20 DAYS PER MONTH
     Route: 048
     Dates: start: 20101019
  16. CYPROTERONE TEVA [Interacting]
     Active Substance: CYPROTERONE
     Dosage: ONE TABLET 7 DAYS A MONTH; THEN 1/2 TABLET 20 DAYS PER MONTH
     Route: 048
     Dates: start: 20110404
  17. CYPROTERONE [Suspect]
     Active Substance: CYPROTERONE
     Indication: HYPERANDROGENISM
     Dosage: ONE TABLET 7 DAYS A MONTH; THEN 1/2 TABLET 20 DAYS PER MONTH
     Route: 048
     Dates: start: 20111125
  18. CYPROTERONE [Suspect]
     Active Substance: CYPROTERONE
     Dosage: ONE TABLET 7 DAYS A MONTH; THEN 1/2 TABLET 20 DAYS PER MONTH
     Route: 048
     Dates: start: 20120326
  19. ANDROCUR [Suspect]
     Active Substance: CYPROTERONE ACETATE
     Dosage: 1/2 TABLET 7 DAYS A MONTH, THEN ONE TABLET 7 DAYS A MONTH, THEN 1/2 TABLET 20 DAYS A MONTH
     Route: 048
     Dates: start: 200507, end: 201506
  20. CYPROTERONE ACETATE ARROW 50MG SCORED TABLET [Suspect]
     Active Substance: CYPROTERONE ACETATE
     Dosage: ONE TABLET 7 DAYS A MONTH; THEN 1/2 TABLET 20 DAYS PER MONTH
     Route: 048
     Dates: start: 20130602
  21. CYPROTERONE [Suspect]
     Active Substance: CYPROTERONE
     Dosage: ONE TABLET 7 DAYS A MONTH; THEN 1/2 TABLET 20 DAYS PER MONTH
     Route: 048
     Dates: start: 20121016
  22. CYPROTERONE BIOGARAN [Interacting]
     Active Substance: CYPROTERONE ACETATE
     Dosage: ONE TABLET 7 DAYS A MONTH: THEN Y, TABLET 20 DAYS PER MONTH
     Route: 048
     Dates: start: 20140122
  23. KEPPRA [Suspect]
     Active Substance: LEVETIRACETAM
     Indication: EPILEPSY
     Dosage: UNK
     Route: 048
     Dates: start: 201408, end: 20141111
  24. CYPROTERON MYLAN [Suspect]
     Active Substance: CYPROTERONE ACETATE
     Indication: HYPERANDROGENISM
     Dosage: ONE TABLET 7 DAYS A MONTH: THEN Y, TABLET 20 DAYS PER MONTH
     Route: 048
     Dates: start: 20090615
  25. ACETATE DE CYPROTERONE EG [Interacting]
     Active Substance: CYPROTERONE ACETATE
     Dosage: ONE TABLET 7 DAYS A MONTH: THEN Y, TABLET 20 DAYS PER MONTH
     Route: 048
     Dates: start: 20140712
  26. CYPROTERONE ACETATE ARROW 50MG SCORED TABLET [Suspect]
     Active Substance: CYPROTERONE ACETATE
     Indication: HYPERANDROGENISM
     Dosage: ONE TABLET 7 DAYS A MONTH; THEN 1/2 TABLET 20 DAYS PER MONTH
     Route: 048
     Dates: start: 20100409, end: 20100701
  27. CYPROTERONE BIOGARAN [Interacting]
     Active Substance: CYPROTERONE ACETATE
     Indication: HYPERANDROGENISM
     Dosage: ONE TABLET 7 DAYS A MONTH: THEN Y, TABLET 20 DAYS PER MONTH
     Route: 048
     Dates: start: 20130503
  28. CYPROTERONE BIOGARAN [Interacting]
     Active Substance: CYPROTERONE ACETATE
     Dosage: ONE TABLET 7 DAYS A MONTH: THEN Y, TABLET 20 DAYS PER MONTH
     Route: 048
     Dates: start: 20130926
  29. CYPROTERON MYLAN [Suspect]
     Active Substance: CYPROTERONE ACETATE
     Dosage: ONE TABLET 7 DAYS A MONTH; THEN 1/2 TABLET 20 DAYS PER MONTH
     Route: 048
     Dates: start: 20140603
  30. CYPROTERONE [Suspect]
     Active Substance: CYPROTERONE
     Dosage: ONE TABLET 7 DAYS A MONTH; THEN 1/2 TABLET 20 DAYS PER MONTH
     Route: 048
     Dates: start: 20120720
  31. CYPROTERONE BIOGARAN [Interacting]
     Active Substance: CYPROTERONE ACETATE
     Dosage: ONE TABLET 7 DAYS A MONTH: THEN Y, TABLET 20 DAYS PER MONTH
     Route: 048
     Dates: start: 20130612
  32. ANDROCUR [Suspect]
     Active Substance: CYPROTERONE ACETATE
     Indication: HYPERANDROGENISM
     Dosage: ONE TABLET 7 DAYS A MONTH, THEN 1/2 TABLET 20 DAYS PER MONTH
     Route: 048
     Dates: start: 199806, end: 20040901
  33. CYPROTERONE ACETATE ARROW 50MG SCORED TABLET [Suspect]
     Active Substance: CYPROTERONE ACETATE
     Dosage: ONE TABLET 7 DAYS A MONTH; THEN 1/2 TABLET 20 DAYS PER MONTH
     Route: 048
     Dates: start: 20120102, end: 20120326
  34. CYPROTERON MYLAN [Suspect]
     Active Substance: CYPROTERONE ACETATE
     Dosage: ONE TABLET 7 DAYS A MONTH; THEN 1/2 TABLET 20 DAYS PER MONTH
     Route: 048
     Dates: start: 20091105
  35. CYPROTERON MYLAN [Suspect]
     Active Substance: CYPROTERONE ACETATE
     Dosage: ONE TABLET 7 DAYS A MONTH; THEN 1/2 TABLET 20 DAYS PER MONTH
     Route: 048
     Dates: start: 20091218
  36. CYPROTERONE TEVA [Interacting]
     Active Substance: CYPROTERONE
     Indication: HYPERANDROGENISM
     Dosage: ONE TABLET 7 DAYS A MONTH; THEN 1/2 TABLET 20 DAYS PER MONTH
     Route: 048
     Dates: start: 20101206
  37. OROMONE [Concomitant]
     Active Substance: ESTRADIOL
     Indication: PRODUCT USED FOR UNKNOWN INDICATION
     Dosage: ONE TABLET 20 DAYS PER MONTH
     Route: 065
     Dates: start: 200507, end: 20120827
  38. CYCLEANE [Concomitant]
     Active Substance: DESOGESTREL\ETHINYL ESTRADIOL
     Indication: PRODUCT USED FOR UNKNOWN INDICATION
     Dosage: UNK
     Route: 065
     Dates: start: 2000, end: 2004

REACTIONS (10)
  - Fatigue [Not Recovered/Not Resolved]
  - Headache [Not Recovered/Not Resolved]
  - Meningioma [Recovered/Resolved with Sequelae]
  - Product prescribing error [Unknown]
  - Condition aggravated [Unknown]
  - Contraindicated product prescribed [Unknown]
  - Sleep disorder [Not Recovered/Not Resolved]
  - Tension headache [Not Recovered/Not Resolved]
  - Intracranial tumour haemorrhage [Recovered/Resolved]
  - Impaired work ability [Unknown]

NARRATIVE: CASE EVENT DATE: 2008
